FAERS Safety Report 8876573 (Version 1)
Quarter: 2012Q4

REPORT INFORMATION
  Report Type: 
  Country: ES (occurrence: ES)
  Receive Date: 20121029
  Receipt Date: 20121029
  Transmission Date: 20130627
  Serious: Yes (Life-Threatening, Hospitalization, Other)
  Sender: FDA-Public Use
  Company Number: ES-PERRIGO-12ES009133

PATIENT
  Age: 33 Year
  Sex: Female

DRUGS (3)
  1. IBUPROFEN 200 MG 604 [Suspect]
     Indication: INFLUENZA LIKE ILLNESS
     Dosage: UNK, sporadic
     Route: 048
  2. INTERFERON BETA-1A [Suspect]
     Indication: PRODUCT USED FOR UNKNOWN INDICATION
     Dosage: UNK
     Route: 065
  3. DEFLAZACORT [Suspect]
     Indication: PRODUCT USED FOR UNKNOWN INDICATION
     Dosage: UNK
     Route: 065

REACTIONS (16)
  - Toxic epidermal necrolysis [Recovering/Resolving]
  - Rash morbilliform [Recovering/Resolving]
  - Skin burning sensation [Recovering/Resolving]
  - Epidermal necrosis [Recovering/Resolving]
  - Blister [Recovering/Resolving]
  - Musculoskeletal pain [Recovering/Resolving]
  - Skin exfoliation [Recovering/Resolving]
  - Stomatitis [Recovering/Resolving]
  - Mucosal inflammation [Recovering/Resolving]
  - Nikolsky^s sign [Recovering/Resolving]
  - Punctate keratitis [Recovering/Resolving]
  - Paronychia [Recovering/Resolving]
  - Dermatitis [Recovering/Resolving]
  - Malaise [Recovering/Resolving]
  - Pyrexia [Recovering/Resolving]
  - Cough [Recovering/Resolving]
